FAERS Safety Report 6678930-X (Version None)
Quarter: 2010Q2

REPORT INFORMATION
  Report Type: 
  Country: None (occurrence: None)
  Receive Date: 20100402
  Receipt Date: 20090420
  Transmission Date: 20101027
  Serious: Yes (Other)
  Sender: FDA-Public Use
  Company Number: 2009178848

PATIENT

DRUGS (1)
  1. ARGATROBAN [Suspect]
     Dosage: 1.0 MG, INTRAVENOUS
     Route: 042
     Dates: start: 20090228, end: 20090302

REACTIONS (1)
  - INTERNATIONAL NORMALISED RATIO INCREASED [None]
